FAERS Safety Report 15224191 (Version 4)
Quarter: 2022Q2

REPORT INFORMATION
  Report Type: Spontaneous
  Country: US (occurrence: US)
  Receive Date: 20180731
  Receipt Date: 20220629
  Transmission Date: 20220721
  Serious: Yes (Hospitalization, Other)
  Sender: FDA-Public Use
  Company Number: US-TAKEDA-2018TUS023357

PATIENT

DRUGS (35)
  1. PREVACID [Suspect]
     Active Substance: LANSOPRAZOLE
     Indication: Gastrooesophageal reflux disease
     Dosage: 30 MG, ONCE DAILY
     Route: 048
     Dates: start: 2007, end: 2010
  2. PANTOPRAZOLE [Suspect]
     Active Substance: PANTOPRAZOLE
     Indication: Gastrooesophageal reflux disease
     Dosage: 40 MG, ONCE DAILY
     Route: 048
     Dates: start: 2011
  3. NEXIUM [Suspect]
     Active Substance: ESOMEPRAZOLE MAGNESIUM
     Indication: Gastrooesophageal reflux disease
     Dosage: 40 MILLIGRAM, QD
     Route: 048
     Dates: start: 2007, end: 2016
  4. ESOMEPRAZOLE [Suspect]
     Active Substance: ESOMEPRAZOLE
     Indication: Gastrooesophageal reflux disease
     Dosage: 40 MILLIGRAM, QD
     Route: 048
  5. ESOMEPRAZOLE [Suspect]
     Active Substance: ESOMEPRAZOLE
     Dosage: 40 MG, ONCE DAILY
     Route: 048
     Dates: start: 2016
  6. OMEPRAZOLE [Suspect]
     Active Substance: OMEPRAZOLE
     Indication: Gastrooesophageal reflux disease
     Dosage: UNK
     Route: 048
     Dates: start: 2017
  7. LOSARTAN [Concomitant]
     Active Substance: LOSARTAN
     Indication: Hypertension
     Dosage: UNK
     Dates: start: 2010, end: 2015
  8. CARVEDILOL [Concomitant]
     Active Substance: CARVEDILOL
     Indication: Hypertension
     Dosage: UNK
     Dates: start: 2013, end: 2016
  9. CARVEDILOL [Concomitant]
     Active Substance: CARVEDILOL
     Indication: Dialysis
     Dosage: UNK
     Dates: start: 2008
  10. HYDROCODONE [Concomitant]
     Active Substance: HYDROCODONE
     Indication: Pain
     Dosage: UNK
     Dates: start: 2008, end: 2013
  11. LANTUS [Concomitant]
     Active Substance: INSULIN GLARGINE
     Indication: Diabetes mellitus
     Dosage: UNK
     Dates: start: 2004, end: 2016
  12. HYZAAR [Concomitant]
     Active Substance: HYDROCHLOROTHIAZIDE\LOSARTAN POTASSIUM
     Indication: Hypertension
     Dosage: UNK
     Dates: start: 2007, end: 2010
  13. METFORMIN [Concomitant]
     Active Substance: METFORMIN HYDROCHLORIDE
     Indication: Diabetes mellitus
     Dosage: UNK
     Dates: start: 2007, end: 2016
  14. ALPRAZOLAM [Concomitant]
     Active Substance: ALPRAZOLAM
     Indication: Anxiety
     Dosage: UNK
     Dates: start: 2004, end: 2016
  15. PREMARIN [Concomitant]
     Active Substance: ESTROGENS, CONJUGATED
     Indication: Hormone replacement therapy
     Dosage: UNK
     Dates: start: 2007, end: 2016
  16. SIMVASTATIN [Concomitant]
     Active Substance: SIMVASTATIN
     Indication: Blood cholesterol increased
     Dosage: UNK
     Dates: start: 2007, end: 2016
  17. CARISOPRODOL [Concomitant]
     Active Substance: CARISOPRODOL
     Indication: Pain
     Dosage: UNK
     Dates: start: 2007, end: 2014
  18. CARISOPRODOL [Concomitant]
     Active Substance: CARISOPRODOL
     Indication: Muscle spasms
  19. PROMETHAZINE [Concomitant]
     Active Substance: PROMETHAZINE HYDROCHLORIDE
     Indication: Hypersensitivity
     Dosage: UNK
     Dates: start: 2013, end: 2014
  20. PROMETHAZINE [Concomitant]
     Active Substance: PROMETHAZINE HYDROCHLORIDE
     Indication: Hypersensitivity
  21. FAMOTIDINE [Concomitant]
     Active Substance: FAMOTIDINE
     Dosage: UNK
  22. FAMOTIDINE [Concomitant]
     Active Substance: FAMOTIDINE
     Dosage: UNK
  23. ZANTAC [Concomitant]
     Active Substance: RANITIDINE HYDROCHLORIDE
     Dosage: 300 MILLIGRAM
  24. RANITIDINE [Concomitant]
     Active Substance: RANITIDINE
     Dosage: UNK
  25. RANITIDINE [Concomitant]
     Active Substance: RANITIDINE
     Dosage: UNK
  26. CIMETIDINE HYDROCHLORIDE [Concomitant]
     Active Substance: CIMETIDINE HYDROCHLORIDE
     Dosage: UNK
  27. CIMETIDINE HYDROCHLORIDE [Concomitant]
     Active Substance: CIMETIDINE HYDROCHLORIDE
     Dosage: UNK
  28. ASPIRIN [Concomitant]
     Active Substance: ASPIRIN
     Dosage: UNK
     Dates: start: 2012
  29. ALBUTEROL SULFATE [Concomitant]
     Active Substance: ALBUTEROL SULFATE
     Indication: Dyspnoea
     Dosage: UNK
     Dates: start: 2008
  30. CINACALCET [Concomitant]
     Active Substance: CINACALCET
     Indication: Dialysis
     Dosage: UNK
     Dates: start: 2022
  31. HYDRALAZINE [Concomitant]
     Active Substance: HYDRALAZINE HYDROCHLORIDE
     Indication: Blood pressure abnormal
     Dosage: UNK
     Dates: start: 2009
  32. LETROZOLE [Concomitant]
     Active Substance: LETROZOLE
     Indication: Breast cancer
     Dosage: UNK
     Dates: start: 2017
  33. OXYCODONE [Concomitant]
     Active Substance: OXYCODONE
     Indication: Pain
     Dosage: UNK
     Dates: start: 2010
  34. PARICALCITOL [Concomitant]
     Active Substance: PARICALCITOL
     Indication: Dialysis
     Dosage: UNK
     Dates: start: 2021
  35. INSULIN NOS [Concomitant]
     Active Substance: INSULIN NOS
     Indication: Diabetes mellitus
     Dosage: UNK
     Dates: start: 1990

REACTIONS (3)
  - Pyelonephritis [Not Recovered/Not Resolved]
  - Acute kidney injury [Not Recovered/Not Resolved]
  - Chronic kidney disease [Not Recovered/Not Resolved]

NARRATIVE: CASE EVENT DATE: 20130514
